FAERS Safety Report 16726356 (Version 1)
Quarter: 2019Q3

REPORT INFORMATION
  Report Type: Spontaneous
  Country: CH (occurrence: CH)
  Receive Date: 20190821
  Receipt Date: 20190821
  Transmission Date: 20191005
  Serious: Yes (Death, Life-Threatening, Hospitalization, Other)
  Sender: FDA-Public Use
  Company Number: CH-GLAXOSMITHKLINE-CH2019150647

PATIENT
  Age: 46 Year
  Sex: Male

DRUGS (15)
  1. DAFALGAN [Suspect]
     Active Substance: ACETAMINOPHEN
     Indication: ANALGESIC THERAPY
     Dosage: AS NECESSARY
     Route: 048
     Dates: start: 2018, end: 20190628
  2. ATRIANCE [Suspect]
     Active Substance: NELARABINE
     Indication: T-CELL LYMPHOMA
     Dosage: 2200 MG, BID
     Route: 042
     Dates: start: 20190527, end: 20190531
  3. ATRIANCE [Suspect]
     Active Substance: NELARABINE
     Dosage: 2200 MG, QD
     Route: 042
     Dates: start: 20190617, end: 20190621
  4. VORICONAZOL [Suspect]
     Active Substance: VORICONAZOLE
     Indication: CANDIDA INFECTION
     Dosage: 300 OR 200 MG / DAY ORAL INTAKE
     Route: 048
     Dates: start: 20190330, end: 20190717
  5. NEXIUM [Suspect]
     Active Substance: ESOMEPRAZOLE MAGNESIUM
     Indication: PRODUCT USED FOR UNKNOWN INDICATION
     Dosage: 1-0-1-0
     Route: 048
     Dates: start: 2018, end: 20190702
  6. PIPERACILLIN SODIUM + TAZOBACTAM SODIUM [Suspect]
     Active Substance: PIPERACILLIN SODIUM\TAZOBACTAM SODIUM
     Indication: CHOLECYSTITIS
     Dosage: 4.5 G, TID
     Route: 042
     Dates: start: 20190628, end: 20190702
  7. FOLIC ACID. [Concomitant]
     Active Substance: FOLIC ACID
     Indication: PRODUCT USED FOR UNKNOWN INDICATION
     Dosage: 1 -0-0-0
     Route: 048
  8. VALTREX [Suspect]
     Active Substance: VALACYCLOVIR HYDROCHLORIDE
     Indication: ANTIVIRAL PROPHYLAXIS
     Dosage: 500 MG, BID
     Route: 048
     Dates: start: 2018, end: 20190718
  9. VITAMIN D3 [Concomitant]
     Active Substance: CHOLECALCIFEROL
     Indication: PRODUCT USED FOR UNKNOWN INDICATION
     Dosage: 2-0-0-0
     Route: 048
  10. BACTRIM [Suspect]
     Active Substance: SULFAMETHOXAZOLE\TRIMETHOPRIM
     Indication: ANTIBIOTIC PROPHYLAXIS
     Dosage: 1-0-0-0 3X/WEEK
     Route: 048
     Dates: start: 2018, end: 20190719
  11. SPIRICORT [Concomitant]
     Active Substance: PREDNISOLONE
     Indication: PRODUCT USED FOR UNKNOWN INDICATION
     Dosage: 1 -0-0-0
     Route: 048
  12. LANTUS [Concomitant]
     Active Substance: INSULIN GLARGINE
     Indication: PRODUCT USED FOR UNKNOWN INDICATION
     Dosage: 1 DF, UNK
     Route: 058
  13. PIPERACILLIN SODIUM + TAZOBACTAM SODIUM [Suspect]
     Active Substance: PIPERACILLIN SODIUM\TAZOBACTAM SODIUM
     Dosage: 4.5 G, TID
     Route: 042
     Dates: start: 20190716, end: 20190717
  14. NOVORAPID [Concomitant]
     Active Substance: INSULIN ASPART
     Indication: PRODUCT USED FOR UNKNOWN INDICATION
     Dosage: 1 DF, UNK
     Route: 058
  15. JADENU [Suspect]
     Active Substance: DEFERASIROX
     Indication: IRON OVERLOAD
     Dosage: 360 MG, BID
     Route: 048
     Dates: start: 2018, end: 20190717

REACTIONS (9)
  - Drug-induced liver injury [Fatal]
  - Blood lactate dehydrogenase increased [Fatal]
  - Blood alkaline phosphatase increased [Fatal]
  - Aspartate aminotransferase increased [Fatal]
  - Dyspnoea [Unknown]
  - Respiratory failure [Unknown]
  - Gamma-glutamyltransferase increased [Fatal]
  - Alanine aminotransferase increased [Fatal]
  - Hepatic failure [Fatal]

NARRATIVE: CASE EVENT DATE: 201906
